FAERS Safety Report 6785494-9 (Version None)
Quarter: 2010Q2

REPORT INFORMATION
  Report Type: 
  Country: None (occurrence: None)
  Receive Date: 20100623
  Receipt Date: 20100610
  Transmission Date: 20101027
  Serious: Yes (Other)
  Sender: FDA-Public Use
  Company Number: BR-RANBAXY-2010R5-34463

PATIENT

DRUGS (1)
  1. CEPHALEXIN [Suspect]
     Indication: BREAST INFECTION
     Dosage: 500 MG, QID
     Route: 048

REACTIONS (1)
  - DRUG EXPOSURE DURING PREGNANCY [None]
